FAERS Safety Report 10978470 (Version 4)
Quarter: 2015Q2

REPORT INFORMATION
  Report Type: Spontaneous
  Country: US (occurrence: US)
  Receive Date: 20150402
  Receipt Date: 20150601
  Transmission Date: 20150821
  Serious: Yes (Hospitalization)
  Sender: FDA-Public Use
  Company Number: US-BAXTER-2015BAX017832

PATIENT
  Age: 35 Year
  Sex: Female
  Weight: 59.02 kg

DRUGS (2)
  1. DIANEAL [Suspect]
     Active Substance: CALCIUM CHLORIDE\DEXTROSE\MAGNESIUM CHLORIDE\SODIUM CHLORIDE\SODIUM LACTATE
     Indication: PERITONEAL DIALYSIS
     Route: 033
  2. DIANEAL LOW CALCIUM PERITONEAL DIALYSIS SOLUTION WITH DEXTROSE [Suspect]
     Active Substance: CALCIUM CHLORIDE\DEXTROSE\MAGNESIUM CHLORIDE\SODIUM CHLORIDE\SODIUM LACTATE
     Indication: PERITONEAL DIALYSIS
     Route: 033

REACTIONS (17)
  - Back pain [Unknown]
  - Diaphragmalgia [Unknown]
  - Headache [Not Recovered/Not Resolved]
  - Muscle spasms [Not Recovered/Not Resolved]
  - Vomiting [Unknown]
  - Dyspnoea [Unknown]
  - Vertigo [Unknown]
  - Peritoneal dialysis complication [Unknown]
  - Blood pressure abnormal [Unknown]
  - Abdominal pain [Not Recovered/Not Resolved]
  - Bone disorder [Unknown]
  - Hypersensitivity [Unknown]
  - Nephropathy toxic [Unknown]
  - Insomnia [Unknown]
  - Procedural pain [Unknown]
  - Dysgeusia [Unknown]
  - Anxiety [Recovering/Resolving]

NARRATIVE: CASE EVENT DATE: 20150401
